FAERS Safety Report 7292757 (Version 4)
Quarter: 2013Q2

REPORT INFORMATION
  Report Type: Spontaneous
  Country: US (occurrence: US)
  Receive Date: 20100224
  Receipt Date: 20130605
  Transmission Date: 20140414
  Serious: Yes (Death)
  Sender: FDA-Public Use
  Company Number: US-PFIZER INC-US-WYE-H13690710

PATIENT
  Age: 51 Year
  Sex: Male

DRUGS (6)
  1. AMIODARONE HCL [Suspect]
     Dosage: UNK
     Route: 048
     Dates: start: 2008
  2. ZOLPIDEM TARTRATE [Suspect]
     Dosage: UNK
     Route: 048
     Dates: start: 2008
  3. TRAZODONE [Suspect]
     Dosage: UNK
     Route: 048
     Dates: start: 2008
  4. QUETIAPINE [Suspect]
     Dosage: UNK
     Route: 048
     Dates: start: 2008
  5. OXYCODONE [Suspect]
     Dosage: UNK
     Route: 048
     Dates: start: 2008
  6. OXYCOCET [Suspect]
     Dosage: UNK
     Route: 048
     Dates: start: 2008

REACTIONS (3)
  - Completed suicide [Fatal]
  - Cardiac arrest [Fatal]
  - Respiratory arrest [Fatal]
